FAERS Safety Report 14413230 (Version 3)
Quarter: 2018Q1

REPORT INFORMATION
  Report Type: Spontaneous
  Country: CH (occurrence: CH)
  Receive Date: 20180119
  Receipt Date: 20180227
  Transmission Date: 20180509
  Serious: Yes (Other)
  Sender: FDA-Public Use
  Company Number: CH-LPDUSPRD-20180031

PATIENT
  Age: 30 Year
  Sex: Female
  Weight: 111 kg

DRUGS (5)
  1. DUOFER [Concomitant]
     Dosage: UNKNOWN
     Route: 065
  2. MAGNESIUM [Concomitant]
     Active Substance: MAGNESIUM
     Dosage: UNKNOWN
     Route: 065
     Dates: start: 2017
  3. FERINJECT [Suspect]
     Active Substance: FERRIC CARBOXYMALTOSE
     Dosage: 1000 MG,1 TOTAL
     Route: 041
     Dates: start: 20171215, end: 20171215
  4. BENEXOL [Concomitant]
     Active Substance: CYANOCOBALAMIN\PYRIDOXINE\THIAMINE
     Dosage: UNKNOWN
     Route: 065
  5. ELEVIT PRONATAL [Concomitant]
     Active Substance: MINERALS\VITAMINS
     Dosage: UNKNOWN
     Route: 065
     Dates: start: 2017

REACTIONS (8)
  - Malaise [Unknown]
  - Respiratory distress [Unknown]
  - Dizziness [Unknown]
  - Palpitations [Unknown]
  - Dyspnoea [Unknown]
  - Erythema [Unknown]
  - Syncope [Unknown]
  - Exposure during pregnancy [Unknown]

NARRATIVE: CASE EVENT DATE: 20171215
